FAERS Safety Report 4925934-0 (Version None)
Quarter: 2006Q1

REPORT INFORMATION
  Report Type: 
  Country: None (occurrence: None)
  Receive Date: 20060228
  Receipt Date: 20050418
  Transmission Date: 20060701
  Serious: No
  Sender: FDA-Public Use
  Company Number: US-GLAXOSMITHKLINE-A0554521A

PATIENT
  Age: 39 Year
  Sex: Female

DRUGS (23)
  1. LAMICTAL [Suspect]
     Indication: PELVIC PAIN
     Dosage: 175MG PER DAY
     Route: 048
  2. ZONEGRAN [Concomitant]
  3. NYSTATIN [Concomitant]
  4. FOLIC ACID [Concomitant]
  5. VITAMIN B COMPLEX CAP [Concomitant]
  6. THIAMINE [Concomitant]
  7. EDTA [Concomitant]
  8. DHEA [Concomitant]
  9. ALPHA LIPOIC ACID [Concomitant]
  10. VITAMIN B-12 [Concomitant]
  11. ASCORBIC ACID [Concomitant]
  12. ASCORBIC ACID [Concomitant]
  13. SELENIUM SULFIDE [Concomitant]
  14. ZINC [Concomitant]
  15. VITAMIN E [Concomitant]
  16. COENZYME Q10 [Concomitant]
  17. CALCIUM CITRATE [Concomitant]
  18. MAGNESIUM SULFATE [Concomitant]
  19. ACETYLCARNITINE [Concomitant]
  20. PROGESTERONE [Concomitant]
  21. IRON [Concomitant]
  22. ZESTRIL [Concomitant]
  23. NORVASC [Concomitant]

REACTIONS (9)
  - ALOPECIA [None]
  - ANOREXIA [None]
  - ANXIETY [None]
  - DEPRESSION [None]
  - DIARRHOEA [None]
  - GINGIVAL RECESSION [None]
  - HYPOAESTHESIA [None]
  - JOINT SWELLING [None]
  - NAUSEA [None]
